FAERS Safety Report 4988866-8 (Version None)
Quarter: 2006Q2

REPORT INFORMATION
  Report Type: 
  Country: None (occurrence: None)
  Receive Date: 20060425
  Receipt Date: 20060411
  Transmission Date: 20061013
  Serious: Yes (Death, Other)
  Sender: FDA-Public Use
  Company Number: 2006BH008072

PATIENT
  Age: 56 Year
  Sex: Female

DRUGS (1)
  1. HEPARIN SODIUM [Suspect]
     Indication: DRUG USE FOR UNKNOWN INDICATION
     Dosage: 2500 UNITS, UNK; IV
     Route: 042

REACTIONS (3)
  - ACCIDENTAL OVERDOSE [None]
  - MALAISE [None]
  - THROMBOCYTOPENIA [None]
